FAERS Safety Report 26139145 (Version 1)
Quarter: 2025Q4

REPORT INFORMATION
  Report Type: Report from Study
  Country: CA (occurrence: CA)
  Receive Date: 20251210
  Receipt Date: 20251210
  Transmission Date: 20260118
  Serious: Yes (Other)
  Sender: ROCHE
  Company Number: CA-ROCHE-10000450283

PATIENT
  Age: 59 Year
  Sex: Female
  Weight: 75 kg

DRUGS (24)
  1. ACTEMRA [Suspect]
     Active Substance: TOCILIZUMAB
     Indication: Rheumatoid arthritis
     Dosage: DRUG DOSE FIRST ADMINISTERED IS 608 MG MILLIGRAM(S)
     Route: 042
     Dates: start: 20190114, end: 2020
  2. ACTEMRA [Suspect]
     Active Substance: TOCILIZUMAB
     Dosage: DRUG DOSE FIRST ADMINISTERED IS 576 MG MILLIGRAM(S)
     Route: 042
     Dates: start: 202001
  3. ACTEMRA [Suspect]
     Active Substance: TOCILIZUMAB
     Dosage: DRUG DOSE FIRST ADMINISTERED IS 608 MG MILLIGRAM(S)
     Route: 042
     Dates: start: 202101
  4. ACTEMRA [Suspect]
     Active Substance: TOCILIZUMAB
     Dosage: DRUG DOSE FIRST ADMINISTERED IS 584 MG MILLIGRAM(S)
     Route: 042
     Dates: end: 2025
  5. ACTEMRA [Suspect]
     Active Substance: TOCILIZUMAB
     Route: 042
  6. ACTEMRA [Suspect]
     Active Substance: TOCILIZUMAB
     Route: 042
  7. ACTEMRA [Suspect]
     Active Substance: TOCILIZUMAB
     Route: 042
     Dates: start: 20190114
  8. ACTEMRA [Suspect]
     Active Substance: TOCILIZUMAB
     Route: 042
  9. ACTEMRA [Suspect]
     Active Substance: TOCILIZUMAB
     Indication: Rheumatoid arthritis
     Route: 058
     Dates: start: 2025
  10. ACTEMRA [Suspect]
     Active Substance: TOCILIZUMAB
     Route: 058
  11. ALEVE [Concomitant]
     Active Substance: NAPROXEN SODIUM
     Dosage: DRUG DOSE FIRST ADMINISTERED IS 220 MG MILLIGRAM(S)
     Route: 048
  12. ATORVASTATIN [Concomitant]
     Active Substance: ATORVASTATIN
     Dosage: DRUG DOSE FIRST ADMINISTERED IS 80 MG MILLIGRAM(S)
     Route: 048
  13. CALCIUM [Concomitant]
     Active Substance: CALCIUM
     Dosage: DRUG DOSE FIRST ADMINISTERED IS 600 MG MILLIGRAM(S)
  14. Cannabidiol Oral Oil [Concomitant]
     Dosage: AS DIRECTED
     Route: 061
  15. CELEBREX [Concomitant]
     Active Substance: CELECOXIB
     Dosage: DRUG DOSE FIRST ADMINISTERED IS 200 MG MILLIGRAM(S)
     Route: 048
  16. CELEBREX [Concomitant]
     Active Substance: CELECOXIB
     Dosage: DRUG DOSE FIRST ADMINISTERED IS 200 MG MILLIGRAM(S)
     Route: 048
  17. PERINDOPRIL [Concomitant]
     Active Substance: PERINDOPRIL
     Dosage: DRUG DOSE FIRST ADMINISTERED IS 4 MG MILLIGRAM(S)
     Route: 048
  18. LINAGLIPTIN [Concomitant]
     Active Substance: LINAGLIPTIN
     Dosage: DRUG DOSE FIRST ADMINISTERED IS 5 MG MILLIGRAM(S)
     Route: 048
  19. LIPITOR [Concomitant]
     Active Substance: ATORVASTATIN CALCIUM
     Dosage: DRUG DOSE FIRST ADMINISTERED IS 20 MG MILLIGRAM(S)
     Route: 048
  20. METFORMIN [Concomitant]
     Active Substance: METFORMIN HYDROCHLORIDE
     Dosage: DRUG DOSE FIRST ADMINISTERED IS 500 MG MILLIGRAM(S)
  21. PREMARIN [Concomitant]
     Active Substance: ESTROGENS, CONJUGATED
     Dosage: 0.625MG/G, FREQUENCY: 3 INTO EVERY WEEK
     Route: 061
  22. SULFASALAZINE [Concomitant]
     Active Substance: SULFASALAZINE
     Dosage: DRUG DOSE FIRST ADMINISTERED IS 500 MG MILLIGRAM(S)
     Route: 048
  23. VITAMIN D3 [Concomitant]
     Active Substance: CHOLECALCIFEROL
     Dosage: DRUG DOSE FIRST ADMINISTERED IS 25 MG MICROGRAM(S)
     Route: 048
  24. VITAMIN D3 [Concomitant]
     Active Substance: CHOLECALCIFEROL
     Route: 048

REACTIONS (1)
  - Thrombocytopenia [Unknown]

NARRATIVE: CASE EVENT DATE: 20251127
